FAERS Safety Report 4554815-X (Version None)
Quarter: 2004Q4

REPORT INFORMATION
  Report Type: 
  Country: None (occurrence: None)
  Receive Date: 20041227
  Receipt Date: 20040715
  Transmission Date: 20050328
  Serious: Yes (Life-Threatening, Hospitalization, Disabling, Other)
  Sender: FDA-Public Use
  Company Number: 2004-0007202

PATIENT
  Age: 65 Year
  Sex: Male
  Weight: 50.3493 kg

DRUGS (9)
  1. VIREAD [Suspect]
     Indication: ACQUIRED IMMUNODEFICIENCY SYNDROME
     Dosage: 1 IN 1 D, ORAL
     Route: 048
     Dates: start: 20020729, end: 20040528
  2. KALETRA [Concomitant]
  3. VIRAMUNE [Concomitant]
  4. TRICOR [Concomitant]
  5. LISINOPRIL [Concomitant]
  6. ACTOS [Concomitant]
  7. GLYBURIDE [Concomitant]
  8. PERCOCET [Concomitant]
  9. LEVAQUIN [Concomitant]

REACTIONS (3)
  - RENAL FAILURE ACUTE [None]
  - RENAL TUBULAR DISORDER [None]
  - RENAL TUBULAR NECROSIS [None]
